FAERS Safety Report 4736414-X (Version None)
Quarter: 2005Q3

REPORT INFORMATION
  Report Type: 
  Country: None (occurrence: None)
  Receive Date: 20050802
  Receipt Date: 20050427
  Transmission Date: 20060218
  Serious: Yes (Hospitalization)
  Sender: FDA-Public Use
  Company Number: 6011237F

PATIENT
  Age: 29 Year
  Sex: Male

DRUGS (1)
  1. NIASPAN [Suspect]
     Indication: HIGH DENSITY LIPOPROTEIN DECREASED
     Dosage: 750 MG QD PO
     Route: 048
     Dates: start: 20040930, end: 20041003

REACTIONS (4)
  - ERYTHEMA [None]
  - FLUSHING [None]
  - HYPOTENSION [None]
  - PRURITUS [None]
